FAERS Safety Report 20855651 (Version 1)
Quarter: 2022Q2

REPORT INFORMATION
  Report Type: Spontaneous
  Country: US (occurrence: US)
  Receive Date: 20220520
  Receipt Date: 20220520
  Transmission Date: 20220721
  Serious: Yes (Hospitalization)
  Sender: FDA-Public Use
  Company Number: US-PFIZER INC-202200526028

PATIENT
  Age: 67 Year
  Sex: Female
  Weight: 70.204 kg

DRUGS (1)
  1. METRONIDAZOLE [Suspect]
     Active Substance: METRONIDAZOLE
     Dosage: 250 MG, 1X/DAY
     Route: 048

REACTIONS (1)
  - Vomiting [Unknown]
